FAERS Safety Report 15683247 (Version 1)
Quarter: 2018Q4

REPORT INFORMATION
  Report Type: Spontaneous
  Country: CN (occurrence: CN)
  Receive Date: 20181204
  Receipt Date: 20181204
  Transmission Date: 20190205
  Serious: Yes (Other)
  Sender: FDA-Public Use
  Company Number: CN-ROCHE-2219656

PATIENT
  Age: 52 Year
  Sex: Female

DRUGS (16)
  1. PACLITAXEL. [Concomitant]
     Active Substance: PACLITAXEL
     Indication: BREAST CANCER RECURRENT
     Route: 042
     Dates: end: 201506
  2. EPIRUBICIN [Concomitant]
     Active Substance: EPIRUBICIN
     Indication: INVASIVE DUCTAL BREAST CARCINOMA
     Route: 065
     Dates: start: 20071007, end: 20080203
  3. HERCEPTIN [Suspect]
     Active Substance: TRASTUZUMAB
     Dosage: MAINTENANCE DOSE
     Route: 042
     Dates: start: 201506
  4. HERCEPTIN [Suspect]
     Active Substance: TRASTUZUMAB
     Dosage: LOADING DOSE
     Route: 042
     Dates: start: 20180208, end: 20181001
  5. HERCEPTIN [Suspect]
     Active Substance: TRASTUZUMAB
     Dosage: MAINTAINANCE DOSE
     Route: 042
     Dates: start: 20180208, end: 20181001
  6. EXEMESTANE. [Concomitant]
     Active Substance: EXEMESTANE
     Route: 065
     Dates: start: 201506
  7. EXEMESTANE. [Concomitant]
     Active Substance: EXEMESTANE
     Route: 065
     Dates: start: 201610
  8. CAPECITABINE. [Suspect]
     Active Substance: CAPECITABINE
     Indication: BREAST CANCER RECURRENT
     Route: 048
     Dates: start: 20161024, end: 20161130
  9. FULVESTRANT. [Concomitant]
     Active Substance: FULVESTRANT
     Dosage: 500MG ONCE
     Route: 065
     Dates: start: 20180208, end: 20180208
  10. CAPECITABINE. [Suspect]
     Active Substance: CAPECITABINE
     Dosage: FROM DAY 1 TO DAY 14
     Route: 048
  11. GIMERACIL/OTERACIL POTASSIUM [Concomitant]
     Route: 048
     Dates: start: 20180208, end: 20181001
  12. CAPECITABINE. [Suspect]
     Active Substance: CAPECITABINE
     Route: 048
     Dates: start: 201701
  13. ZOLEDRONIC ACID [Concomitant]
     Active Substance: ZOLEDRONIC ACID
     Indication: METASTASES TO BONE
     Route: 065
     Dates: start: 20161024
  14. CYCLOPHOSPHAMIDE. [Concomitant]
     Active Substance: CYCLOPHOSPHAMIDE
     Indication: INVASIVE DUCTAL BREAST CARCINOMA
     Dosage: 0.8 UNIT UNKNOWN
     Route: 065
     Dates: start: 20071007, end: 20080203
  15. HERCEPTIN [Suspect]
     Active Substance: TRASTUZUMAB
     Indication: INVASIVE DUCTAL BREAST CARCINOMA
     Dosage: LOADING DOSE
     Route: 042
     Dates: start: 201506
  16. VINORELBINE [Concomitant]
     Active Substance: VINORELBINE\VINORELBINE TARTRATE
     Dosage: 40MG PER DAY
     Route: 065
     Dates: start: 20180208, end: 20181001

REACTIONS (7)
  - Malignant pleural effusion [Recovered/Resolved]
  - Lung infection [Recovering/Resolving]
  - Bronchiectasis [Unknown]
  - Hepatic cyst [Unknown]
  - Palmar-plantar erythrodysaesthesia syndrome [Recovered/Resolved]
  - Pulmonary mass [Recovering/Resolving]
  - Lymphangiosis carcinomatosa [Recovering/Resolving]

NARRATIVE: CASE EVENT DATE: 201506
